FAERS Safety Report 23268986 (Version 1)
Quarter: 2023Q4

REPORT INFORMATION
  Report Type: Spontaneous
  Country: DE (occurrence: DE)
  Receive Date: 20231206
  Receipt Date: 20231206
  Transmission Date: 20240110
  Serious: Yes (Death, Life-Threatening, Other)
  Sender: FDA-Public Use
  Company Number: DE-CELLTRION INC.-2023DE023132

PATIENT

DRUGS (5)
  1. VEGZELMA [Suspect]
     Active Substance: BEVACIZUMAB-ADCD
     Indication: Colon cancer
     Dosage: 1174.5 MG
     Route: 042
     Dates: start: 20230130, end: 20230810
  2. VEGZELMA [Suspect]
     Active Substance: BEVACIZUMAB-ADCD
     Dosage: 1174.5 MG
     Route: 042
     Dates: start: 20230130, end: 20230810
  3. VEGZELMA [Suspect]
     Active Substance: BEVACIZUMAB-ADCD
     Dosage: 1174.5 MG
     Route: 042
     Dates: start: 20230130, end: 20230810
  4. BEVACIZUMAB [Suspect]
     Active Substance: BEVACIZUMAB
     Indication: Colon cancer
     Dosage: 1174.5 MG
     Route: 042
     Dates: start: 20221107, end: 20230114
  5. BEVACIZUMAB [Suspect]
     Active Substance: BEVACIZUMAB
     Dosage: 1174.5 MG
     Route: 042
     Dates: start: 20221107, end: 20230114

REACTIONS (2)
  - Large intestine perforation [Fatal]
  - Overdose [Unknown]
